FAERS Safety Report 10214277 (Version 2)
Quarter: 2014Q2

REPORT INFORMATION
  Report Type: Spontaneous
  Country: US (occurrence: US)
  Receive Date: 20140603
  Receipt Date: 20140609
  Transmission Date: 20141212
  Serious: No
  Sender: FDA-Public Use
  Company Number: US-PFIZER INC-2014150671

PATIENT
  Age: 61 Year
  Sex: Male
  Weight: 113.38 kg

DRUGS (5)
  1. LYRICA [Suspect]
     Indication: DIABETIC NEUROPATHY
     Dosage: 150 MG, 3X/DAY
  2. NEXIUM [Concomitant]
     Indication: GASTROOESOPHAGEAL REFLUX DISEASE
     Dosage: 40 MG, DAILY
  3. REQUIP [Concomitant]
     Indication: RESTLESS LEGS SYNDROME
     Dosage: 1 MG, 5X/DAY
  4. CRESTOR [Concomitant]
     Indication: BLOOD CHOLESTEROL ABNORMAL
     Dosage: 5 MG, DAILY
  5. TIKOSYN [Concomitant]
     Indication: ARRHYTHMIA
     Dosage: UNK, 2XDAY

REACTIONS (5)
  - Drug withdrawal syndrome [Unknown]
  - Diarrhoea [Recovered/Resolved]
  - Depression [Recovered/Resolved]
  - Feeling abnormal [Recovered/Resolved]
  - Irritability [Recovered/Resolved]
